FAERS Safety Report 12527611 (Version 1)
Quarter: 2016Q3

REPORT INFORMATION
  Report Type: Spontaneous
  Country: BR (occurrence: BR)
  Receive Date: 20160705
  Receipt Date: 20160705
  Transmission Date: 20161109
  Serious: Yes (Other)
  Sender: FDA-Public Use
  Company Number: BR-ROCHE-1784896

PATIENT
  Age: 74 Year
  Sex: Female

DRUGS (4)
  1. AVASTIN [Suspect]
     Active Substance: BEVACIZUMAB
     Indication: OVARIAN CANCER
     Route: 065
     Dates: start: 20150616
  2. AVASTIN [Suspect]
     Active Substance: BEVACIZUMAB
     Route: 065
     Dates: start: 20160129
  3. CARBOPLATIN. [Suspect]
     Active Substance: CARBOPLATIN
     Indication: OVARIAN CANCER
     Dosage: AUC 6
     Route: 065
     Dates: start: 20150616
  4. PACLITAXEL. [Suspect]
     Active Substance: PACLITAXEL
     Indication: OVARIAN CANCER
     Route: 065
     Dates: start: 20150616

REACTIONS (7)
  - Splenic artery aneurysm [Unknown]
  - Splenic calcification [Unknown]
  - Hiatus hernia [Unknown]
  - Pulmonary mass [Unknown]
  - Atelectasis [Unknown]
  - Pancreatic atrophy [Unknown]
  - Diverticulum intestinal [Unknown]
